FAERS Safety Report 25609632 (Version 1)
Quarter: 2025Q3

REPORT INFORMATION
  Report Type: Spontaneous
  Country: EU (occurrence: EU)
  Receive Date: 20250728
  Receipt Date: 20250728
  Transmission Date: 20251020
  Serious: Yes (Hospitalization)
  Sender: ALEXION PHARMACEUTICALS
  Company Number: EU-ROCHE-10000326354

PATIENT
  Age: 82 Year
  Sex: Female
  Weight: 68 kg

DRUGS (15)
  1. FULVESTRANT [Suspect]
     Active Substance: FULVESTRANT
     Indication: Breast cancer metastatic
     Dates: start: 20240709
  2. FULVESTRANT [Suspect]
     Active Substance: FULVESTRANT
  3. CAPECITABINE [Suspect]
     Active Substance: CAPECITABINE
     Indication: Product used for unknown indication
     Route: 065
     Dates: start: 20250624, end: 20250627
  4. ALPELISIB [Suspect]
     Active Substance: ALPELISIB
     Indication: Breast cancer metastatic
     Dosage: 300 MILLIGRAM, QD
     Dates: start: 20240709
  5. ALPELISIB [Suspect]
     Active Substance: ALPELISIB
  6. XARELTO [Concomitant]
     Active Substance: RIVAROXABAN
     Indication: Anticoagulant therapy
     Dosage: THERAPY WAS ONGOING
     Dates: start: 20210211
  7. INDAPAMIDE\PERINDOPRIL [Concomitant]
     Active Substance: INDAPAMIDE\PERINDOPRIL
     Dosage: THERAPY WAS ONGOING
     Dates: start: 20220608
  8. PRAVASTATIN [Concomitant]
     Active Substance: PRAVASTATIN
     Dosage: THERAPY WAS ONGOING
     Dates: start: 20061102
  9. METFORMIN [Concomitant]
     Active Substance: METFORMIN HYDROCHLORIDE
     Indication: Prophylaxis
     Dates: start: 20240709, end: 20240716
  10. METFORMIN [Concomitant]
     Active Substance: METFORMIN HYDROCHLORIDE
     Dates: start: 20240717, end: 20240824
  11. CARBOMER [Concomitant]
     Active Substance: CARBOMER
  12. Mag b6 [Concomitant]
     Indication: Blood magnesium abnormal
     Dosage: DRUG DOSE FIRST ADMINISTERED IS 6 CAPSULETHERAPY WAS ONGOING
     Dates: start: 20250220
  13. KETOPROFEN [Concomitant]
     Active Substance: KETOPROFEN
     Indication: Pain
  14. PFIZER-BIONTECH COVID-19 VACCINE [Concomitant]
     Active Substance: TOZINAMERAN
  15. DOLIPRANE [Concomitant]
     Active Substance: ACETAMINOPHEN
     Indication: Pain prophylaxis

REACTIONS (1)
  - Arteriospasm coronary [Not Recovered/Not Resolved]

NARRATIVE: CASE EVENT DATE: 20250627
